FAERS Safety Report 5451916-9 (Version None)
Quarter: 2007Q3

REPORT INFORMATION
  Report Type: 
  Country: None (occurrence: None)
  Receive Date: 20070913
  Receipt Date: 20070904
  Transmission Date: 20080115
  Serious: Yes (Hospitalization, Other)
  Sender: FDA-Public Use
  Company Number: PHHO2007JP12852

PATIENT
  Age: 75 Year
  Sex: Male

DRUGS (10)
  1. DIOVAN [Suspect]
     Indication: HYPERTENSION
     Dosage: 80 MG, QD
     Route: 048
     Dates: start: 20030305, end: 20070402
  2. DIOVAN [Suspect]
     Dosage: UNK, NO TREATMENT
     Dates: start: 20070403
  3. HARNAL [Concomitant]
     Indication: BENIGN PROSTATIC HYPERPLASIA
     Dosage: 0.2 MG, UNK
     Route: 048
     Dates: start: 19990223, end: 20070402
  4. JUVELA [Concomitant]
     Indication: PERIPHERAL CIRCULATORY FAILURE
     Dosage: 3 DF, UNK
     Route: 048
     Dates: start: 20021004, end: 20070402
  5. METHYCOBAL [Concomitant]
     Indication: HYPOAESTHESIA
     Dosage: 1500 UG, UNK
     Route: 048
     Dates: start: 20021004, end: 20070402
  6. SUNRYTHM [Concomitant]
     Indication: ATRIAL FIBRILLATION
     Dosage: 50 MG, UNK
     Route: 048
     Dates: start: 20031114, end: 20070402
  7. ASPIRIN [Concomitant]
     Indication: ATRIAL FIBRILLATION
     Dates: start: 20031114, end: 20070402
  8. ADALAT [Concomitant]
     Indication: HYPERTENSION
     Dosage: 20 MG, UNK
     Route: 048
     Dates: start: 20031114, end: 20070402
  9. NORVASC [Concomitant]
     Indication: HYPERTENSION
     Dosage: 5 MG, UNK
     Route: 048
     Dates: start: 20040404, end: 20070402
  10. VASOLAN [Concomitant]
     Indication: ATRIAL FIBRILLATION
     Dosage: 120 MG, UNK
     Route: 048
     Dates: start: 20040526, end: 20070402

REACTIONS (2)
  - CEREBRAL INFARCTION [None]
  - HEMIPLEGIA [None]
